FAERS Safety Report 23315594 (Version 1)
Quarter: 2023Q4

REPORT INFORMATION
  Report Type: Spontaneous
  Country: CN (occurrence: CN)
  Receive Date: 20231219
  Receipt Date: 20231219
  Transmission Date: 20240109
  Serious: Yes (Hospitalization, Other)
  Sender: FDA-Public Use
  Company Number: CN-AMNEAL PHARMACEUTICALS-2023-AMRX-04379

PATIENT
  Age: 38 Year
  Sex: Male

DRUGS (11)
  1. LINEZOLID [Suspect]
     Active Substance: LINEZOLID
     Indication: Postoperative wound infection
     Dosage: 0.6 GRAM, EVERY 12HR
     Route: 042
     Dates: start: 20220810, end: 20220831
  2. LINEZOLID [Suspect]
     Active Substance: LINEZOLID
     Dosage: 0.6 GRAM, EVERY 12HR
     Route: 042
     Dates: start: 20221007, end: 20221019
  3. CLINDAMYCIN [Suspect]
     Active Substance: CLINDAMYCIN
     Indication: Postoperative wound infection
     Dosage: 0.8 GRAM, EVERY 8HR
     Route: 042
     Dates: start: 20221110, end: 20221118
  4. SULFAMETHOXAZOLE [Suspect]
     Active Substance: SULFAMETHOXAZOLE
     Indication: Postoperative wound infection
     Dosage: 0.8 GRAM, QD
     Route: 048
     Dates: start: 20221110, end: 20221118
  5. KETOROLAC TROMETHAMINE [Concomitant]
     Active Substance: KETOROLAC TROMETHAMINE
     Indication: Pain
     Dosage: UNK
     Route: 065
  6. KETOROLAC TROMETHAMINE [Concomitant]
     Active Substance: KETOROLAC TROMETHAMINE
     Dosage: 30 MILLIGRAM, BID
     Route: 042
     Dates: start: 20221013, end: 20221015
  7. KETOROLAC TROMETHAMINE [Concomitant]
     Active Substance: KETOROLAC TROMETHAMINE
     Dosage: 30 MILLIGRAM, BID
     Route: 042
     Dates: start: 20221022, end: 20221025
  8. ACETAMINOPHEN\OXYCODONE HYDROCHLORIDE [Concomitant]
     Active Substance: ACETAMINOPHEN\OXYCODONE HYDROCHLORIDE
     Indication: Product used for unknown indication
     Dosage: UNK
     Route: 065
  9. NADROPARIN CALCIUM [Concomitant]
     Active Substance: NADROPARIN CALCIUM
     Indication: Product used for unknown indication
     Dosage: UNK
     Route: 065
  10. TRAMADOL [Concomitant]
     Active Substance: TRAMADOL\TRAMADOL HYDROCHLORIDE
     Indication: Pain
     Dosage: 0.1 GRAM, ONCE
     Route: 048
     Dates: start: 20221103, end: 20221105
  11. IBUPROFEN [Concomitant]
     Active Substance: IBUPROFEN
     Indication: COVID-19
     Dosage: 0.2 GRAM, TID
     Route: 048

REACTIONS (2)
  - Hypertensive urgency [Recovered/Resolved]
  - Drug eruption [Recovered/Resolved]

NARRATIVE: CASE EVENT DATE: 20221015
